FAERS Safety Report 17158093 (Version 1)
Quarter: 2019Q4

REPORT INFORMATION
  Report Type: Spontaneous
  Country: US (occurrence: US)
  Receive Date: 20191122
  Receipt Date: 20191122
  Transmission Date: 20200122
  Serious: No
  Sender: FDA-Public Use
  Company Number: None

PATIENT
  Sex: Female

DRUGS (1)
  1. ERLOTINIB 100MG TEVA PHARMACEUTICALS USA [Suspect]
     Active Substance: ERLOTINIB
     Indication: LUNG NEOPLASM MALIGNANT
     Route: 048
     Dates: start: 20190529

REACTIONS (1)
  - Nausea [None]
